FAERS Safety Report 10568019 (Version 1)
Quarter: 2014Q4

REPORT INFORMATION
  Report Type: Spontaneous
  Country: KW (occurrence: None)
  Receive Date: 20141105
  Receipt Date: 20141105
  Transmission Date: 20150529
  Serious: Yes (Other)
  Sender: FDA-Public Use
  Company Number: None

PATIENT
  Age: 38 Year
  Sex: Male
  Weight: 110 kg

DRUGS (2)
  1. TAZOCIN [Suspect]
     Active Substance: PIPERACILLIN SODIUM\TAZOBACTAM SODIUM
     Indication: NEPHROTIC SYNDROME
     Route: 042
     Dates: start: 20141102, end: 20141103
  2. TAZOCIN [Suspect]
     Active Substance: PIPERACILLIN SODIUM\TAZOBACTAM SODIUM
     Indication: IMMUNODEFICIENCY
     Route: 042
     Dates: start: 20141102, end: 20141103

REACTIONS (2)
  - Palmar erythema [None]
  - Skin lesion [None]

NARRATIVE: CASE EVENT DATE: 20141103
